FAERS Safety Report 14110131 (Version 1)
Quarter: 2017Q4

REPORT INFORMATION
  Report Type: Spontaneous
  Country: DE (occurrence: DE)
  Receive Date: 20171020
  Receipt Date: 20171020
  Transmission Date: 20180321
  Serious: Yes (Other)
  Sender: FDA-Public Use
  Company Number: DE-AMGEN-DEUSP2017158407

PATIENT
  Sex: Female
  Weight: 1.06 kg

DRUGS (5)
  1. CYTOTECT [Concomitant]
     Active Substance: HUMAN CYTOMEGALOVIRUS IMMUNE GLOBULIN
     Dosage: 100 IE/KG BW
  2. GANCICLOVIR. [Suspect]
     Active Substance: GANCICLOVIR
     Indication: CONGENITAL CYTOMEGALOVIRUS INFECTION
     Dosage: 6 MG/KG, BID
     Route: 042
  3. FOSCARNET [Concomitant]
     Active Substance: FOSCARNET
     Dosage: 45 MG/KG, UNK
  4. NEUPOGEN [Suspect]
     Active Substance: FILGRASTIM
     Indication: CONGENITAL CYTOMEGALOVIRUS INFECTION
     Dosage: 5 MUG/KG, UNK
     Route: 065
  5. VALGANCICLOVIR. [Suspect]
     Active Substance: VALGANCICLOVIR
     Indication: CONGENITAL CYTOMEGALOVIRUS INFECTION
     Dosage: 15 MG/KG, BID
     Route: 048

REACTIONS (4)
  - Intentional product use issue [Unknown]
  - Off label use [Unknown]
  - Agranulocytosis [Unknown]
  - Drug resistance [Unknown]
